FAERS Safety Report 6805421-5 (Version None)
Quarter: 2010Q2

REPORT INFORMATION
  Report Type: 
  Country: None (occurrence: None)
  Receive Date: 20100628
  Receipt Date: 20071121
  Transmission Date: 20101027
  Serious: No
  Sender: FDA-Public Use
  Company Number: US-PFIZER INC-2007099156

PATIENT
  Age: 46 Year
  Sex: Male

DRUGS (3)
  1. GEODON [Suspect]
  2. CYMBALTA [Interacting]
     Indication: DEPRESSION
     Route: 048
  3. WELLBUTRIN [Interacting]
     Indication: DEPRESSION

REACTIONS (3)
  - DEPRESSION [None]
  - DRUG INTERACTION [None]
  - DYSTONIA [None]
